FAERS Safety Report 19303226 (Version 1)
Quarter: 2021Q2

REPORT INFORMATION
  Report Type: Spontaneous
  Country: IT (occurrence: IT)
  Receive Date: 20210525
  Receipt Date: 20210525
  Transmission Date: 20210717
  Serious: Yes (Hospitalization, Other)
  Sender: FDA-Public Use
  Company Number: IT-OXFORD PHARMACEUTICALS, LLC-2111939

PATIENT
  Age: 80 Year
  Sex: Female

DRUGS (5)
  1. DIAZEPAM. [Concomitant]
     Active Substance: DIAZEPAM
     Route: 040
  2. VALPROIC ACID. [Concomitant]
     Active Substance: VALPROIC ACID
  3. PIPERACILLIN AND TAZOBACTAM [Concomitant]
     Active Substance: PIPERACILLIN SODIUM\TAZOBACTAM SODIUM
  4. LEVETIRACETAM. [Suspect]
     Active Substance: LEVETIRACETAM
     Indication: SEIZURE
  5. LACOSAMIDE. [Concomitant]
     Active Substance: LACOSAMIDE

REACTIONS (4)
  - Pneumonia aspiration [Unknown]
  - Chronic kidney disease [Unknown]
  - Dysphagia [Unknown]
  - Status epilepticus [Unknown]
